APPROVED DRUG PRODUCT: PAROEX
Active Ingredient: CHLORHEXIDINE GLUCONATE
Strength: 0.12%
Dosage Form/Route: SOLUTION;DENTAL
Application: A076434 | Product #001
Applicant: SUNSTAR AMERICAS INC
Approved: Nov 29, 2005 | RLD: No | RS: No | Type: DISCN